FAERS Safety Report 23767345 (Version 1)
Quarter: 2024Q2

REPORT INFORMATION
  Report Type: Spontaneous
  Country: US (occurrence: US)
  Receive Date: 20240422
  Receipt Date: 20240422
  Transmission Date: 20240715
  Serious: No
  Sender: FDA-Public Use
  Company Number: US-AMNEAL PHARMACEUTICALS-2023-AMRX-01299

PATIENT

DRUGS (1)
  1. WARFARIN SODIUM [Suspect]
     Active Substance: WARFARIN SODIUM
     Indication: Pulmonary embolism
     Route: 065

REACTIONS (4)
  - Abdominal discomfort [Unknown]
  - Oropharyngeal discomfort [Unknown]
  - Gastrooesophageal reflux disease [Unknown]
  - Back pain [Unknown]
